FAERS Safety Report 25488595 (Version 1)
Quarter: 2025Q2

REPORT INFORMATION
  Report Type: Spontaneous
  Country: US (occurrence: US)
  Receive Date: 20250627
  Receipt Date: 20250627
  Transmission Date: 20250716
  Serious: No
  Sender: CB FLEET
  Company Number: US-PRESTIGE-202410-US-003556

PATIENT
  Sex: Female

DRUGS (1)
  1. NIX [Suspect]
     Active Substance: PERMETHRIN
     Indication: Lice infestation
     Route: 061

REACTIONS (6)
  - Vulvovaginal burning sensation [Not Recovered/Not Resolved]
  - Vulvovaginal swelling [Not Recovered/Not Resolved]
  - Vaginal discharge [Not Recovered/Not Resolved]
  - Vulvovaginal erythema [Not Recovered/Not Resolved]
  - Product administered at inappropriate site [Unknown]
  - Product use in unapproved indication [Unknown]
